FAERS Safety Report 16391367 (Version 1)
Quarter: 2019Q2

REPORT INFORMATION
  Report Type: Spontaneous
  Country: US (occurrence: US)
  Receive Date: 20190604
  Receipt Date: 20190604
  Transmission Date: 20190711
  Serious: No
  Sender: FDA-Public Use
  Company Number: US-GLAXOSMITHKLINE-US2019099149

PATIENT
  Age: 52 Year
  Sex: Female

DRUGS (5)
  1. NICODERM CQ [Suspect]
     Active Substance: NICOTINE
     Indication: SMOKING CESSATION THERAPY
     Dosage: 21 MG, QD
     Route: 062
  2. NICORETTE [Suspect]
     Active Substance: NICOTINE
     Indication: SMOKING CESSATION THERAPY
     Dosage: 2 MG, UNK (5 TIMES A DAY)
     Route: 048
  3. NICORETTE [Suspect]
     Active Substance: NICOTINE
     Indication: SMOKING CESSATION THERAPY
     Dosage: 4 MG, UNK (5 TIMES A DAY)
     Route: 048
  4. NICORETTE WHITE ICE MINT [Suspect]
     Active Substance: NICOTINE
     Indication: SMOKING CESSATION THERAPY
     Dosage: 4 MG, UNK (5 TIMES A DAY)
     Route: 048
  5. NICORETTE WHITE ICE MINT [Suspect]
     Active Substance: NICOTINE
     Indication: SMOKING CESSATION THERAPY
     Dosage: UNK, (5 TIMES A DAY)
     Route: 048

REACTIONS (8)
  - Drug ineffective [Unknown]
  - Drug intolerance [Unknown]
  - Adverse drug reaction [Unknown]
  - Wrong technique in product usage process [Unknown]
  - Tachycardia [Unknown]
  - Abnormal dreams [Recovered/Resolved]
  - Application site urticaria [Recovered/Resolved]
  - Nicotine dependence [Unknown]
